FAERS Safety Report 17467594 (Version 5)
Quarter: 2020Q2

REPORT INFORMATION
  Report Type: Spontaneous
  Country: CA (occurrence: CA)
  Receive Date: 20200227
  Receipt Date: 20200422
  Transmission Date: 20200713
  Serious: Yes (Other)
  Sender: FDA-Public Use
  Company Number: CA-PFIZER INC-2020084248

PATIENT
  Age: 50 Year
  Sex: Male

DRUGS (8)
  1. MESALAZINE [Concomitant]
     Active Substance: MESALAMINE
     Dosage: 1.5 G, UNK
  2. PREDNISONE. [Concomitant]
     Active Substance: PREDNISONE
     Dosage: UNK
  3. VITAMIN D [COLECALCIFEROL] [Concomitant]
     Active Substance: CHOLECALCIFEROL
     Dosage: UNK
  4. OMEGA 3 [FISH OIL] [Concomitant]
     Active Substance: FISH OIL
     Dosage: UNK
  5. MERCAPTOPURINE. [Concomitant]
     Active Substance: MERCAPTOPURINE
     Dosage: UNK
  6. ZOPICLONE [Concomitant]
     Active Substance: ZOPICLONE
     Dosage: UNK
  7. CONCERTA [Concomitant]
     Active Substance: METHYLPHENIDATE HYDROCHLORIDE
     Dosage: UNK
  8. PREGABALIN. [Suspect]
     Active Substance: PREGABALIN
     Dosage: UNK
     Dates: start: 2018

REACTIONS (1)
  - Intervertebral disc protrusion [Unknown]

NARRATIVE: CASE EVENT DATE: 2018
